FAERS Safety Report 7167690-4 (Version None)
Quarter: 2010Q4

REPORT INFORMATION
  Report Type: 
  Country: None (occurrence: None)
  Receive Date: 20101216
  Receipt Date: 20100730
  Transmission Date: 20110411
  Serious: No
  Sender: FDA-Public Use
  Company Number: A0873155A

PATIENT
  Age: 60 Year
  Sex: Male

DRUGS (2)
  1. NICOTINE POLACRILEX [Suspect]
  2. CHANTIX [Concomitant]

REACTIONS (1)
  - BLOOD GLUCOSE INCREASED [None]
